FAERS Safety Report 25183651 (Version 1)
Quarter: 2025Q2

REPORT INFORMATION
  Report Type: Spontaneous
  Country: RU (occurrence: RU)
  Receive Date: 20250410
  Receipt Date: 20250410
  Transmission Date: 20250717
  Serious: Yes (Other)
  Sender: ROCHE
  Company Number: RU-ROCHE-10000250991

PATIENT
  Sex: Male

DRUGS (1)
  1. ALECTINIB [Suspect]
     Active Substance: ALECTINIB
     Indication: Non-small cell lung cancer
     Route: 065
     Dates: start: 201502, end: 202206

REACTIONS (3)
  - Metastases to central nervous system [Unknown]
  - Tumour haemorrhage [Unknown]
  - Speech disorder [Unknown]

NARRATIVE: CASE EVENT DATE: 20220601
